FAERS Safety Report 5223085-1 (Version None)
Quarter: 2007Q1

REPORT INFORMATION
  Report Type: 
  Country: None (occurrence: None)
  Receive Date: 20070129
  Receipt Date: 20070117
  Transmission Date: 20070707
  Serious: Yes (Other)
  Sender: FDA-Public Use
  Company Number: US-PFIZER INC-2007005261

PATIENT
  Sex: Female
  Weight: 56.7 kg

DRUGS (6)
  1. LYRICA [Suspect]
     Indication: NEURALGIA
  2. ALL OTHER THERAPEUTIC PRODUCTS [Concomitant]
  3. NEURONTIN [Concomitant]
  4. BARIUM [Concomitant]
  5. TYLENOL [Concomitant]
  6. CODEINE [Concomitant]

REACTIONS (6)
  - CONSTIPATION [None]
  - DELIRIUM [None]
  - FATIGUE [None]
  - HALLUCINATION [None]
  - MALAISE [None]
  - PARALYSIS [None]
